FAERS Safety Report 5110914-5 (Version None)
Quarter: 2006Q3

REPORT INFORMATION
  Report Type: 
  Country: None (occurrence: None)
  Receive Date: 20060919
  Receipt Date: 20060906
  Transmission Date: 20061208
  Serious: Yes (Death)
  Sender: FDA-Public Use
  Company Number: 2006097376

PATIENT
  Sex: Female

DRUGS (4)
  1. MIGLITOL                          (MIGLITOL) [Suspect]
     Indication: DIABETES MELLITUS
     Dosage: 150 MG, ORAL
     Route: 048
  2. AMARYL [Concomitant]
  3. ACTOS [Concomitant]
  4. BEZAFIBRATE [Concomitant]

REACTIONS (4)
  - ABDOMINAL PAIN [None]
  - DIARRHOEA [None]
  - OEDEMA [None]
  - SWELLING FACE [None]
